FAERS Safety Report 8123591-6 (Version None)
Quarter: 2012Q1

REPORT INFORMATION
  Report Type: 
  Country: None (occurrence: None)
  Receive Date: 20120208
  Receipt Date: 20120202
  Transmission Date: 20120608
  Serious: Yes (Other)
  Sender: FDA-Public Use
  Company Number: PHHY2012AR009351

PATIENT
  Sex: Female

DRUGS (2)
  1. DIOVAN [Suspect]
     Indication: HEPATIC STEATOSIS
  2. DIOVAN [Suspect]
     Indication: CARDIAC DISORDER
     Dosage: 160 MG, DAILY
     Route: 065
     Dates: start: 20120115

REACTIONS (2)
  - WRIST FRACTURE [None]
  - FALL [None]
